FAERS Safety Report 8355916 (Version 3)
Quarter: 2014Q2

REPORT INFORMATION
  Report Type: Spontaneous
  Country: US (occurrence: US)
  Receive Date: 20120126
  Receipt Date: 20140429
  Transmission Date: 20141212
  Serious: Yes (Other)
  Sender: FDA-Public Use
  Company Number: PHEH2012US001978

PATIENT
  Sex: Male

DRUGS (2)
  1. CLOZAPINE [Suspect]
     Dosage: UNK
  2. VITAMINS NOS [Concomitant]
     Dosage: UNK UKN, UNK

REACTIONS (4)
  - Psychotic disorder [Recovering/Resolving]
  - Renal disorder [Unknown]
  - Aggression [Unknown]
  - Drug ineffective [Unknown]
